FAERS Safety Report 21001713 (Version 1)
Quarter: 2022Q2

REPORT INFORMATION
  Report Type: Spontaneous
  Country: US (occurrence: US)
  Receive Date: 20220624
  Receipt Date: 20220624
  Transmission Date: 20220720
  Serious: No
  Sender: FDA-Public Use
  Company Number: US-BioHaven Pharmaceuticals-2022BHV001123

PATIENT
  Age: 74 Year
  Sex: Female
  Weight: 51.302 kg

DRUGS (1)
  1. NURTEC ODT [Suspect]
     Active Substance: RIMEGEPANT SULFATE
     Indication: Migraine
     Dosage: 1 TABLET. SHE WAS PROVIDED A SAMPLE OF 1 TABLET ONLY FROM HER HCP. PATIENT STATED THE SAMPLE MAY HAV
     Route: 060
     Dates: start: 20220411, end: 20220412

REACTIONS (3)
  - Oral mucosal exfoliation [Recovering/Resolving]
  - Oral mucosal blistering [Recovering/Resolving]
  - Tongue blistering [Recovering/Resolving]

NARRATIVE: CASE EVENT DATE: 20220412
